FAERS Safety Report 9830732 (Version 1)
Quarter: 2014Q1

REPORT INFORMATION
  Report Type: Report from Study
  Country: US (occurrence: US)
  Receive Date: 20140120
  Receipt Date: 20140120
  Transmission Date: 20141002
  Serious: Yes (Hospitalization, Other)
  Sender: FDA-Public Use
  Company Number: US-ABBVIE-14P-163-1189133-00

PATIENT
  Sex: Female

DRUGS (3)
  1. HUMIRA [Suspect]
     Indication: PSORIASIS
     Dates: end: 201308
  2. HUMIRA [Suspect]
     Dates: end: 201310
  3. HUMIRA [Suspect]

REACTIONS (13)
  - Hepatic cirrhosis [Unknown]
  - Renal failure [Unknown]
  - Atrial fibrillation [Not Recovered/Not Resolved]
  - Urinary tract infection [Unknown]
  - Septic shock [Unknown]
  - Pneumonia [Unknown]
  - Cardiac failure congestive [Unknown]
  - Blood disorder [Unknown]
  - Platelet disorder [Unknown]
  - Diarrhoea [Unknown]
  - Incontinence [Unknown]
  - Clostridium difficile infection [Unknown]
  - Psoriasis [Unknown]
